FAERS Safety Report 20718744 (Version 5)
Quarter: 2024Q4

REPORT INFORMATION
  Report Type: Report from Study
  Country: KR (occurrence: KR)
  Receive Date: 20220418
  Receipt Date: 20241008
  Transmission Date: 20250115
  Serious: Yes (Hospitalization, Other)
  Sender: TAKEDA
  Company Number: KR-TAKEDA-2022TUS024688

PATIENT
  Age: 74 Year
  Sex: Female
  Weight: 46.9 kg

DRUGS (44)
  1. VEDOLIZUMAB [Suspect]
     Active Substance: VEDOLIZUMAB
     Indication: Colitis ulcerative
     Dosage: 300 MILLIGRAM, QD
     Route: 042
     Dates: start: 20220211
  2. KANARB [Concomitant]
     Indication: Colitis ulcerative
     Dosage: 60 MILLIGRAM, QD
     Route: 048
     Dates: start: 20200611
  3. AXID [Concomitant]
     Active Substance: NIZATIDINE
     Indication: Colitis ulcerative
     Dosage: 150 MILLIGRAM, BID
     Route: 048
     Dates: start: 20220125, end: 20220408
  4. METOCLOPRAMIDE HYDROCHLORIDE [Concomitant]
     Active Substance: METOCLOPRAMIDE HYDROCHLORIDE
     Indication: Colitis ulcerative
     Dosage: 10 MILLIGRAM, QD
     Route: 042
     Dates: start: 20220212, end: 20220212
  5. NORVASC [Concomitant]
     Active Substance: AMLODIPINE BESYLATE
     Indication: Colitis ulcerative
     Dosage: 10 MILLIGRAM
     Route: 048
     Dates: start: 20220209, end: 20220212
  6. KONIL [Concomitant]
     Indication: Colitis ulcerative
     Dosage: 4 MILLIGRAM, QD
     Route: 048
     Dates: start: 20220228, end: 20220819
  7. KONIL [Concomitant]
     Dosage: 2 MILLIGRAM
     Route: 048
     Dates: start: 20220820
  8. SMOFLIPID [Concomitant]
     Active Substance: FISH OIL\MEDIUM-CHAIN TRIGLYCERIDES\OLIVE OIL\SOYBEAN OIL
     Indication: Hypophagia
     Dosage: 250 MILLILITER, QD
     Route: 042
     Dates: start: 20220228, end: 20220228
  9. VITAMINS [Concomitant]
     Active Substance: VITAMINS
     Indication: Vitamin supplementation
     Dosage: 5 MILLILITER, QD
     Route: 042
     Dates: start: 20220228, end: 20220228
  10. VITAMINS [Concomitant]
     Active Substance: VITAMINS
     Indication: Adverse event
     Dosage: 5 MILLILITER
     Route: 042
     Dates: start: 20220323, end: 20220327
  11. VITAMINS [Concomitant]
     Active Substance: VITAMINS
     Dosage: 5 MILLILITER, QD
     Route: 042
     Dates: start: 20220408, end: 20220417
  12. FURTMAN [Concomitant]
     Indication: Adverse event
     Dosage: 0.2 MILLILITER, QD
     Route: 042
     Dates: start: 20220318, end: 20220327
  13. FURTMAN [Concomitant]
     Dosage: 0.2 MILLILITER, QD
     Route: 042
     Dates: start: 20220408, end: 20220417
  14. COMBIFLEX PERI [Concomitant]
     Indication: Adverse event
     Dosage: 1100 MILLILITER, QD
     Route: 042
     Dates: start: 20220318, end: 20220327
  15. ULTRACET [Concomitant]
     Active Substance: ACETAMINOPHEN\TRAMADOL HYDROCHLORIDE
     Indication: Adverse event
     Dosage: 1 UNK, BID
     Route: 048
     Dates: start: 20020318, end: 20220327
  16. POLYBUTIN S.R [Concomitant]
     Indication: Adverse event
     Dosage: 300 MILLIGRAM, BID
     Route: 048
     Dates: start: 20180320, end: 20220324
  17. POLYBUTIN S.R [Concomitant]
     Dosage: 300 MILLIGRAM, BID
     Route: 048
     Dates: start: 20220318, end: 20220324
  18. LOPERAMIDE [Concomitant]
     Active Substance: LOPERAMIDE
     Indication: Adverse event
     Dosage: 2 MILLIGRAM, BID
     Route: 048
     Dates: start: 20220321, end: 20220327
  19. NORZYME [Concomitant]
     Indication: Adverse event
     Dosage: 457.7 MILLIGRAM, QD
     Route: 048
     Dates: start: 20220322, end: 20220322
  20. PHOSTEN [Concomitant]
     Indication: Supplementation therapy
     Dosage: 20 MILLILITER, QD
     Route: 042
     Dates: start: 20220324, end: 20220324
  21. AMINO ACIDS\DEXTROSE\ELECTROLYTES NOS\SOYBEAN OIL\VITAMINS [Concomitant]
     Active Substance: AMINO ACIDS\DEXTROSE\ELECTROLYTES NOS\SOYBEAN OIL\VITAMINS
     Indication: Adverse event
     Dosage: 1085 MILLILITER, QD
     Route: 042
     Dates: start: 20220408, end: 20220417
  22. COLAZAL [Concomitant]
     Active Substance: BALSALAZIDE DISODIUM
     Indication: Colitis ulcerative
     Dosage: 750 MILLIGRAM, BID
     Route: 048
     Dates: start: 20180710
  23. PENTASA [Concomitant]
     Active Substance: MESALAMINE
     Indication: Colitis ulcerative
     Dosage: 1 GRAM
     Route: 054
     Dates: start: 20170613
  24. PENTASA [Concomitant]
     Active Substance: MESALAMINE
     Dosage: UNK
     Route: 048
     Dates: start: 20200609
  25. ALVERIX [Concomitant]
     Indication: Colitis ulcerative
     Dosage: 1 UNK, BID
     Route: 048
     Dates: start: 20200611
  26. .ALPHA.-TOCOPHEROL ACETATE\ALLANTOIN\LIDOCAINE\PREDNISOLONE [Concomitant]
     Active Substance: .ALPHA.-TOCOPHEROL ACETATE\ALLANTOIN\LIDOCAINE\PREDNISOLONE
     Indication: Colitis ulcerative
     Dosage: 2 UNK, QD
     Route: 054
     Dates: start: 20220318, end: 20220318
  27. PREDNISOLONE [Concomitant]
     Active Substance: PREDNISOLONE
     Indication: Colitis ulcerative
     Dosage: 30 MILLIGRAM, QD
     Route: 048
     Dates: start: 20220322, end: 20220328
  28. PREDNISOLONE [Concomitant]
     Active Substance: PREDNISOLONE
     Dosage: 27.5 MILLIGRAM, QD
     Route: 048
     Dates: start: 20220329, end: 20220404
  29. PREDNISOLONE [Concomitant]
     Active Substance: PREDNISOLONE
     Dosage: 25 MILLIGRAM, QD
     Route: 048
     Dates: start: 20220405, end: 20220411
  30. PREDNISOLONE [Concomitant]
     Active Substance: PREDNISOLONE
     Dosage: 22.5 MILLIGRAM, QD
     Route: 048
     Dates: start: 20220412, end: 20220418
  31. PREDNISOLONE [Concomitant]
     Active Substance: PREDNISOLONE
     Dosage: 20 MILLIGRAM, QD
     Route: 048
     Dates: start: 20220419, end: 20220425
  32. PREDNISOLONE [Concomitant]
     Active Substance: PREDNISOLONE
     Dosage: 17.5 MILLIGRAM, QD
     Route: 048
     Dates: start: 20220426, end: 20220502
  33. PREDNISOLONE [Concomitant]
     Active Substance: PREDNISOLONE
     Dosage: 15 MILLIGRAM, QD
     Route: 048
     Dates: start: 20220503, end: 20220510
  34. PREDNISOLONE [Concomitant]
     Active Substance: PREDNISOLONE
     Dosage: 125 MILLIGRAM, QD
     Route: 048
     Dates: start: 20220511, end: 20220518
  35. PREDNISOLONE [Concomitant]
     Active Substance: PREDNISOLONE
     Dosage: 10 MILLIGRAM
     Route: 048
     Dates: start: 20220519, end: 20220526
  36. ACETAMINOPHEN [Concomitant]
     Active Substance: ACETAMINOPHEN
     Dosage: 650 MILLIGRAM, QD
     Route: 048
     Dates: start: 20220411, end: 20220416
  37. XANAX [Concomitant]
     Active Substance: ALPRAZOLAM
     Indication: Adverse event
     Dosage: 0.25 MILLIGRAM, QD
     Route: 048
     Dates: start: 20220411
  38. XANAX [Concomitant]
     Active Substance: ALPRAZOLAM
     Dosage: 0.125 MILLIGRAM, QD
     Route: 048
     Dates: start: 20220411
  39. ALMAGEL-F [Concomitant]
     Indication: Prophylaxis
     Dosage: 15 MILLILITER, PRN
     Route: 048
     Dates: start: 20220409, end: 20220413
  40. PURINETHOL [Concomitant]
     Active Substance: MERCAPTOPURINE
     Indication: Colitis ulcerative
     Dosage: 25 MILLIGRAM, QD
     Route: 048
     Dates: start: 20220413, end: 20220520
  41. K CAB [Concomitant]
     Indication: Gastritis prophylaxis
     Dosage: 50 MILLIGRAM
     Route: 048
     Dates: start: 20220521
  42. Trestan [Concomitant]
     Indication: Adverse event
     Dosage: UNK
     Route: 048
     Dates: start: 20220521
  43. PURINETONE [Concomitant]
     Dosage: 25 MILLIGRAM, QD
     Route: 048
     Dates: start: 20220413, end: 20220520
  44. AZABIO [Concomitant]
     Dosage: 25 MILLIGRAM, QD
     Route: 048
     Dates: start: 20220521

REACTIONS (1)
  - Melaena [Recovered/Resolved]

NARRATIVE: CASE EVENT DATE: 20220318
